FAERS Safety Report 15408479 (Version 1)
Quarter: 2018Q3

REPORT INFORMATION
  Report Type: Spontaneous
  Country: US (occurrence: US)
  Receive Date: 20180920
  Receipt Date: 20180920
  Transmission Date: 20181010
  Serious: Yes (Other)
  Sender: FDA-Public Use
  Company Number: US-PFIZER INC-2018379521

PATIENT
  Age: 74 Year
  Sex: Male

DRUGS (9)
  1. DIOVAN [Concomitant]
     Active Substance: VALSARTAN
     Dosage: 40 MG, UNK
  2. AMITRIPTYLINE HCL CF [Concomitant]
     Dosage: 100 MG, UNK
  3. METOPROLOL TARTRATE. [Concomitant]
     Active Substance: METOPROLOL TARTRATE
     Dosage: 100 MG, UNK
  4. DULERA [Concomitant]
     Active Substance: FORMOTEROL FUMARATE DIHYDRATE\MOMETASONE FUROATE
     Dosage: UNK [MOMETASONE FUROATE 100 MCG/ FORMOTEROL FUMARATE 5 MCG], (HFA AER AD)
  5. SPIRIVA [Concomitant]
     Active Substance: TIOTROPIUM BROMIDE MONOHYDRATE
     Dosage: 18 UG, UNK, (W/DEV)
  6. CARISOPRODOL. [Concomitant]
     Active Substance: CARISOPRODOL
     Dosage: 250 MG, UNK
  7. XELJANZ [Suspect]
     Active Substance: TOFACITINIB CITRATE
     Indication: RHEUMATOID ARTHRITIS
     Dosage: 5 MG, 2X/DAY
     Route: 048
  8. VITAMIN C CITRUS [Concomitant]
     Dosage: 1000 MG, UNK
  9. ASPIRIN. [Concomitant]
     Active Substance: ASPIRIN
     Dosage: 81 MG, UNK

REACTIONS (2)
  - Perirectal abscess [Unknown]
  - Pulmonary hypertension [Unknown]
